FAERS Safety Report 8964031 (Version 1)
Quarter: 2012Q4

REPORT INFORMATION
  Report Type: 
  Country: US (occurrence: US)
  Receive Date: 20121213
  Receipt Date: 20121213
  Transmission Date: 20130627
  Serious: Yes (Hospitalization)
  Sender: FDA-Public Use
  Company Number: US-GLAXOSMITHKLINE-A0871920A

PATIENT
  Age: 67 Year
  Sex: Female

DRUGS (1)
  1. AVANDIA [Suspect]
     Indication: DIABETES MELLITUS
     Dosage: 4MG Twice per day
     Route: 048
     Dates: start: 200203, end: 200511

REACTIONS (5)
  - Cerebrovascular accident [Not Recovered/Not Resolved]
  - Loss of consciousness [Unknown]
  - Renal disorder [Unknown]
  - Gastric disorder [Unknown]
  - Gastrointestinal disorder [Unknown]
